APPROVED DRUG PRODUCT: INFUMORPH
Active Ingredient: MORPHINE SULFATE
Strength: 25MG/ML
Dosage Form/Route: INJECTABLE;INJECTION
Application: N018565 | Product #004 | TE Code: AP
Applicant: HIKMA PHARMACEUTICALS USA INC
Approved: Jul 19, 1991 | RLD: Yes | RS: Yes | Type: RX